APPROVED DRUG PRODUCT: PENTOXIL
Active Ingredient: PENTOXIFYLLINE
Strength: 400MG
Dosage Form/Route: TABLET, EXTENDED RELEASE;ORAL
Application: A074962 | Product #001
Applicant: UPSHER SMITH LABORATORIES LLC
Approved: Mar 31, 1999 | RLD: No | RS: No | Type: DISCN